FAERS Safety Report 8577438-4 (Version None)
Quarter: 2012Q3

REPORT INFORMATION
  Report Type: 
  Country: None (occurrence: None)
  Receive Date: 20120807
  Receipt Date: 20120801
  Transmission Date: 20120928
  Serious: Yes (Hospitalization)
  Sender: FDA-Public Use
  Company Number: PHHY2012IT066422

PATIENT
  Sex: Female

DRUGS (2)
  1. EFFEXOR [Concomitant]
     Indication: DEPRESSION
     Dosage: 75 MG, UNK
  2. FLECAINIDE ACETATE [Suspect]
     Dosage: 1200 MG, UNK
     Route: 048
     Dates: start: 20120722, end: 20120722

REACTIONS (4)
  - INTENTIONAL SELF-INJURY [None]
  - ELECTROCARDIOGRAM QRS COMPLEX PROLONGED [None]
  - ATRIAL FLUTTER [None]
  - DRUG LEVEL INCREASED [None]
